FAERS Safety Report 10901513 (Version 1)
Quarter: 2015Q1

REPORT INFORMATION
  Report Type: Spontaneous
  Country: IT (occurrence: IT)
  Receive Date: 20150310
  Receipt Date: 20150310
  Transmission Date: 20150721
  Serious: Yes (Other)
  Sender: FDA-Public Use
  Company Number: IT-TEVA-545597ACC

PATIENT
  Age: 61 Year
  Sex: Female

DRUGS (2)
  1. OLMEGAN [Concomitant]
     Indication: HYPERTENSION
     Dosage: 1 DF
     Route: 048
  2. DOXAZOSIN [Suspect]
     Active Substance: DOXAZOSIN\DOXAZOSIN MESYLATE
     Indication: HYPERTENSION
     Dosage: 1 DF TOTAL
     Route: 048
     Dates: start: 20150219, end: 20150219

REACTIONS (5)
  - Vertigo [Recovering/Resolving]
  - Vomiting [Recovering/Resolving]
  - Syncope [Recovering/Resolving]
  - Hypotension [Recovering/Resolving]
  - Neck pain [Recovering/Resolving]

NARRATIVE: CASE EVENT DATE: 20150220
